FAERS Safety Report 15209808 (Version 1)
Quarter: 2018Q3

REPORT INFORMATION
  Report Type: Spontaneous
  Country: AU (occurrence: AU)
  Receive Date: 20180727
  Receipt Date: 20180727
  Transmission Date: 20181010
  Serious: Yes (Life-Threatening, Other)
  Sender: FDA-Public Use
  Company Number: AU-MYLANLABS-2018M1055107

PATIENT
  Sex: Female

DRUGS (1)
  1. EPIPEN [Suspect]
     Active Substance: EPINEPHRINE
     Indication: PRODUCT USED FOR UNKNOWN INDICATION
     Dosage: UNK
     Dates: start: 20180716

REACTIONS (4)
  - Drug ineffective [Recovered/Resolved]
  - Product availability issue [Unknown]
  - No adverse event [Unknown]
  - Expired product administered [Recovered/Resolved]

NARRATIVE: CASE EVENT DATE: 20180716
